FAERS Safety Report 18160988 (Version 1)
Quarter: 2020Q3

REPORT INFORMATION
  Report Type: Spontaneous
  Country: US (occurrence: US)
  Receive Date: 20200817
  Receipt Date: 20200817
  Transmission Date: 20201103
  Serious: Yes (Death)
  Sender: FDA-Public Use
  Company Number: None

PATIENT
  Age: 54 Year
  Sex: Female
  Weight: 117.4 kg

DRUGS (3)
  1. ASPIRIN 324MG X1 [Concomitant]
     Dates: start: 20200805, end: 20200805
  2. ENOXAPARIN [Suspect]
     Active Substance: ENOXAPARIN
     Indication: ANTICOAGULANT THERAPY
     Route: 058
     Dates: start: 20200806, end: 20200807
  3. ASPIRIN EC 81MG DAILY [Concomitant]
     Dates: start: 20200806, end: 20200807

REACTIONS (3)
  - Sudden death [None]
  - Retroperitoneal haemorrhage [None]
  - Shock haemorrhagic [None]

NARRATIVE: CASE EVENT DATE: 20200808
